FAERS Safety Report 8092935-6 (Version None)
Quarter: 2012Q1

REPORT INFORMATION
  Report Type: 
  Country: None (occurrence: None)
  Receive Date: 20120131
  Receipt Date: 20120126
  Transmission Date: 20120608
  Serious: Yes (Hospitalization)
  Sender: FDA-Public Use
  Company Number: CZ-AMGEN-CZESP2012005531

PATIENT
  Age: 33 Year
  Sex: Female

DRUGS (22)
  1. ALPRAZOLAM [Concomitant]
     Dosage: 0.5 MG, UNK
     Route: 048
     Dates: start: 20110401
  2. HYDROCORTISONE [Concomitant]
     Dosage: UNK
     Route: 042
     Dates: start: 20110401, end: 20110409
  3. ACYCLOVIR AKRI [Concomitant]
     Dosage: 800 MG, UNK
     Route: 048
     Dates: start: 20110417
  4. TRAMADOL HYDROCHLORIDE [Concomitant]
     Dosage: 50 MG, UNK
     Route: 048
     Dates: start: 20110331, end: 20110402
  5. ALLOPURINOL [Concomitant]
     Dosage: UNK
     Route: 048
     Dates: start: 20110401, end: 20110418
  6. PARACETAMOLUM [Concomitant]
     Dosage: 1000 MG, UNK
     Route: 048
     Dates: start: 20110401, end: 20110409
  7. PREDNISONE TAB [Suspect]
     Indication: DIFFUSE LARGE B-CELL LYMPHOMA
     Dosage: 100 MG, UNK
     Route: 048
     Dates: start: 20110401, end: 20110413
  8. DEGAN [Concomitant]
     Dosage: 10 MG, UNK
     Route: 042
     Dates: start: 20110401, end: 20110414
  9. UROMITEXAN [Concomitant]
     Dosage: 6400 MG, UNK
     Route: 042
     Dates: start: 20110409
  10. ENOXAPARIN SODIUM [Concomitant]
     Dosage: 0.6 ML, UNK
     Route: 058
     Dates: start: 20110314
  11. DOXORUBICIN HCL [Suspect]
     Indication: DIFFUSE LARGE B-CELL LYMPHOMA
     Dosage: 150 MG, QD
     Route: 042
     Dates: start: 20110409
  12. OMEPRAZOLE [Concomitant]
     Dosage: UNK
     Route: 048
     Dates: start: 20110401
  13. CLIMARA [Concomitant]
     Dosage: UNK
     Route: 062
  14. PREDNISONE TAB [Concomitant]
     Dosage: UNK
     Route: 048
     Dates: start: 20110406
  15. CYCLOPHOSPHAMIDE [Suspect]
     Indication: DIFFUSE LARGE B-CELL LYMPHOMA
     Dosage: 6000 MG, QD
     Route: 042
     Dates: start: 20110409
  16. DURAGESIC-100 [Concomitant]
     Dosage: UNK
     Route: 062
  17. ONDANSETRON HCL [Concomitant]
     Dosage: UNK
     Route: 042
     Dates: start: 20110401, end: 20110412
  18. DITHIADEN [Concomitant]
     Dosage: 1.2 MG, UNK
     Route: 042
     Dates: start: 20110401, end: 20110409
  19. NEULASTA [Suspect]
     Indication: DIFFUSE LARGE B-CELL LYMPHOMA
     Dosage: 6 MG, UNK
     Route: 058
     Dates: start: 20110410
  20. RITUXIMAB [Suspect]
     Indication: DIFFUSE LARGE B-CELL LYMPHOMA
     Dosage: 800 MG, UNK
     Route: 042
     Dates: start: 20110401
  21. VINCRISTINE [Suspect]
     Indication: DIFFUSE LARGE B-CELL LYMPHOMA
     Dosage: 1 MG, UNK
     Route: 042
     Dates: start: 20110401
  22. CITALOPRAM HYDROBROMIDE [Concomitant]
     Dosage: 20 MG, UNK
     Route: 048
     Dates: start: 20110401

REACTIONS (2)
  - HYDROPNEUMOTHORAX [None]
  - FEBRILE NEUTROPENIA [None]
